FAERS Safety Report 7309243-0 (Version None)
Quarter: 2011Q1

REPORT INFORMATION
  Report Type: 
  Country: None (occurrence: None)
  Receive Date: 20110223
  Receipt Date: 20110208
  Transmission Date: 20110831
  Serious: Yes (Disabling)
  Sender: FDA-Public Use
  Company Number: JP-ASTRAZENECA-2011SE08075

PATIENT
  Age: 70 Year
  Sex: Male

DRUGS (4)
  1. CASODEX [Suspect]
     Indication: PROSTATE CANCER
     Route: 048
  2. ZOLADEX [Suspect]
     Indication: PROSTATE CANCER
     Route: 058
  3. ANTIHYPERTENSIVE DRUG [Concomitant]
  4. DRUG TO LOWER THE URIC ACID LEVEL [Concomitant]

REACTIONS (1)
  - CEREBRAL INFARCTION [None]
